FAERS Safety Report 4932634-X (Version None)
Quarter: 2006Q1

REPORT INFORMATION
  Report Type: 
  Country: None (occurrence: None)
  Receive Date: 20060301
  Receipt Date: 20060221
  Transmission Date: 20060701
  Serious: Yes (Hospitalization)
  Sender: FDA-Public Use
  Company Number: 2006-138924-NL

PATIENT
  Age: 68 Year
  Sex: Male

DRUGS (10)
  1. DANAPAROID SODIUM [Suspect]
     Indication: HEPARIN-INDUCED THROMBOCYTOPENIA
     Dosage: 1250 ANTI_XA INTRAVENOUS (NOS)
     Route: 042
     Dates: start: 20051228, end: 20060115
  2. GENTAMICIN [Suspect]
     Dosage: DF INTRAVENOUS (NOS)
     Route: 042
     Dates: start: 20060106, end: 20060108
  3. CEFTRIAXONE [Suspect]
     Dosage: 2 G INTRAVENOUS (NOS)
     Route: 042
     Dates: start: 20051223, end: 20060201
  4. AMIODARONE HYDROCHLORIDE [Concomitant]
  5. ESOMEPRAZOLE [Concomitant]
  6. ACEBUTOLOL HYDROCHLORIDE [Concomitant]
  7. RIFAMPICIN [Concomitant]
  8. TAZOCILLINE [Concomitant]
  9. LINEZOLID [Concomitant]
  10. HEPARIN [Concomitant]

REACTIONS (1)
  - THROMBOCYTOPENIA [None]
